FAERS Safety Report 5474080-9 (Version None)
Quarter: 2007Q3

REPORT INFORMATION
  Report Type: 
  Country: None (occurrence: None)
  Receive Date: 20070928
  Receipt Date: 20070928
  Transmission Date: 20080115
  Serious: Yes (Other)
  Sender: FDA-Public Use
  Company Number: None

PATIENT
  Sex: Male
  Weight: 78.0187 kg

DRUGS (3)
  1. TEGRETOL [Suspect]
     Indication: BIPOLAR DISORDER
     Dosage: 1200 MG/DAY 3X 047
     Dates: start: 20070731
  2. TEGRETOL [Suspect]
     Indication: SCHIZOAFFECTIVE DISORDER
     Dosage: 1200 MG/DAY 3X 047
     Dates: start: 20070731
  3. GEODON [Suspect]
     Dosage: 220 MG/DAY 2X 047
     Dates: start: 20070731

REACTIONS (4)
  - ABSCESS [None]
  - SPEECH DISORDER [None]
  - SUBCUTANEOUS ABSCESS [None]
  - TREMOR [None]
